FAERS Safety Report 26193699 (Version 1)
Quarter: 2025Q4

REPORT INFORMATION
  Report Type: Spontaneous
  Country: US (occurrence: None)
  Receive Date: 20251224
  Receipt Date: 20251224
  Transmission Date: 20260119
  Serious: Yes (Hospitalization)
  Sender: FDA-CTU
  Company Number: None

PATIENT
  Age: 91 Year
  Sex: Female
  Weight: 69.8 kg

DRUGS (3)
  1. FEMARA [Suspect]
     Active Substance: LETROZOLE
     Dates: end: 20251222
  2. PALBOCICLIB [Suspect]
     Active Substance: PALBOCICLIB
     Dates: end: 20251222
  3. ELIQUIS [Suspect]
     Active Substance: APIXABAN

REACTIONS (7)
  - Epistaxis [None]
  - Thrombosis [None]
  - Asthenia [None]
  - Dizziness [None]
  - Blood urea nitrogen/creatinine ratio increased [None]
  - Hypovolaemia [None]
  - Metal poisoning [None]

NARRATIVE: CASE EVENT DATE: 20251222
